FAERS Safety Report 15873797 (Version 2)
Quarter: 2019Q3

REPORT INFORMATION
  Report Type: Spontaneous
  Country: CA (occurrence: CA)
  Receive Date: 20190126
  Receipt Date: 20190802
  Transmission Date: 20191004
  Serious: Yes (Death, Hospitalization, Other)
  Sender: FDA-Public Use
  Company Number: CA-SHIRE-CA201901751

PATIENT

DRUGS (4)
  1. INFLIXIMAB [Suspect]
     Active Substance: INFLIXIMAB
     Indication: COLITIS
     Dosage: 5 MILLIGRAM/KILOGRAM
     Route: 065
  2. APO-AZATHIOPRINE [Suspect]
     Active Substance: AZATHIOPRINE
     Indication: COLITIS
     Route: 065
  3. 476 (MESALAZINE/MESALAMINE) [Suspect]
     Active Substance: MESALAMINE
     Indication: COLITIS
     Dosage: UNK
     Route: 065
  4. APO-PREDNISONE [Suspect]
     Active Substance: PREDNISONE
     Indication: STEROID THERAPY
     Dosage: 15 MILLIGRAM, 1X/DAY:QD
     Route: 065

REACTIONS (6)
  - Drug ineffective [Unknown]
  - Drug use disorder [Fatal]
  - Cytomegalovirus colitis [Fatal]
  - Cytomegalovirus viraemia [Fatal]
  - Haemophagocytic lymphohistiocytosis [Fatal]
  - Histoplasmosis [Fatal]
